FAERS Safety Report 6546007-X (Version None)
Quarter: 2010Q1

REPORT INFORMATION
  Report Type: 
  Country: None (occurrence: None)
  Receive Date: 20100121
  Receipt Date: 20100121
  Transmission Date: 20100710
  Serious: Yes (Other)
  Sender: FDA-Public Use
  Company Number: None

PATIENT
  Sex: Female
  Weight: 105 kg

DRUGS (1)
  1. TYLENOL [Suspect]
     Indication: MUSCULOSKELETAL CHEST PAIN
     Dosage: 1 TABLET  DAILY ORAL
     Route: 048
     Dates: start: 20100107, end: 20100115

REACTIONS (3)
  - DIARRHOEA [None]
  - HYPERCHLORHYDRIA [None]
  - NAUSEA [None]
